FAERS Safety Report 7889933-1 (Version None)
Quarter: 2011Q4

REPORT INFORMATION
  Report Type: 
  Country: None (occurrence: None)
  Receive Date: 20111103
  Receipt Date: 20111103
  Transmission Date: 20120403
  Serious: Yes (Other)
  Sender: FDA-Public Use
  Company Number: US-BAYER-2011-038051

PATIENT
  Sex: Male
  Weight: 126 kg

DRUGS (1)
  1. GADOLINIUM IN UNSPECIFIED DRUG [Suspect]
     Indication: NUCLEAR MAGNETIC RESONANCE IMAGING
     Dosage: UNK
     Dates: start: 20040205, end: 20040205

REACTIONS (10)
  - EMOTIONAL DISTRESS [None]
  - RENAL INJURY [None]
  - RENAL IMPAIRMENT [None]
  - JOINT CONTRACTURE [None]
  - NEPHROGENIC SYSTEMIC FIBROSIS [None]
  - RASH [None]
  - MOBILITY DECREASED [None]
  - SWELLING [None]
  - PAIN [None]
  - ANHEDONIA [None]
